FAERS Safety Report 9456702 (Version 1)
Quarter: 2013Q3

REPORT INFORMATION
  Report Type: Spontaneous
  Country: US (occurrence: US)
  Receive Date: 20130813
  Receipt Date: 20130813
  Transmission Date: 20140515
  Serious: No
  Sender: FDA-Public Use
  Company Number: US-TEVA-425424USA

PATIENT
  Age: 26 Year
  Sex: Female
  Weight: 61.29 kg

DRUGS (3)
  1. QVAR [Suspect]
     Indication: ASTHMA
  2. ACCOLATE [Concomitant]
     Indication: ASTHMA
  3. PROAIR [Concomitant]

REACTIONS (1)
  - Dyspnoea [Not Recovered/Not Resolved]
